FAERS Safety Report 19405495 (Version 2)
Quarter: 2021Q2

REPORT INFORMATION
  Report Type: Spontaneous
  Country: US (occurrence: US)
  Receive Date: 20210611
  Receipt Date: 20210617
  Transmission Date: 20210717
  Serious: No
  Sender: FDA-Public Use
  Company Number: US-BAYER-2021-156550

PATIENT
  Age: 65 Year
  Sex: Female

DRUGS (1)
  1. CLIMARA [Suspect]
     Active Substance: ESTRADIOL
     Dosage: UNK UNK, OW
     Route: 062

REACTIONS (6)
  - Application site pain [None]
  - Device adhesion issue [None]
  - Application site pruritus [None]
  - Product odour abnormal [None]
  - Application site irritation [None]
  - Product dose omission issue [None]
